FAERS Safety Report 24148839 (Version 2)
Quarter: 2024Q3

REPORT INFORMATION
  Report Type: Spontaneous
  Country: IT (occurrence: IT)
  Receive Date: 20240729
  Receipt Date: 20240820
  Transmission Date: 20241017
  Serious: Yes (Other)
  Sender: IPSEN
  Company Number: None

PATIENT
  Age: 71 Year
  Sex: Female

DRUGS (1)
  1. DYSPORT [Suspect]
     Active Substance: ABOBOTULINUMTOXINA
     Indication: Muscle spasticity
     Dosage: 1500U
     Route: 030
     Dates: start: 20240621, end: 20240621

REACTIONS (1)
  - Botulism [Unknown]

NARRATIVE: CASE EVENT DATE: 20240628
